FAERS Safety Report 7871999-6 (Version None)
Quarter: 2011Q4

REPORT INFORMATION
  Report Type: 
  Country: None (occurrence: None)
  Receive Date: 20111029
  Receipt Date: 20110311
  Transmission Date: 20120403
  Serious: No
  Sender: FDA-Public Use
  Company Number: US-AMGEN-USASP2011013763

PATIENT
  Age: 11 Year
  Sex: Male
  Weight: 63.039 kg

DRUGS (1)
  1. ENBREL [Suspect]
     Indication: JUVENILE ARTHRITIS
     Dosage: 50 MG, QWK
     Dates: start: 20101022

REACTIONS (2)
  - HEADACHE [None]
  - PHARYNGITIS STREPTOCOCCAL [None]
